FAERS Safety Report 9435755 (Version 1)
Quarter: 2013Q3

REPORT INFORMATION
  Report Type: Spontaneous
  Country: US (occurrence: None)
  Receive Date: 20130801
  Receipt Date: 20130801
  Transmission Date: 20140515
  Serious: Yes (Hospitalization)
  Sender: FDA-Public Use
  Company Number: None

PATIENT
  Age: 76 None
  Sex: Male

DRUGS (1)
  1. AFINITOR [Suspect]
     Indication: NEUROENDOCRINE CARCINOMA
     Route: 048
     Dates: start: 20120709

REACTIONS (2)
  - Pyrexia [None]
  - Urinary tract infection [None]
